FAERS Safety Report 11696030 (Version 1)
Quarter: 2015Q4

REPORT INFORMATION
  Report Type: Spontaneous
  Country: US (occurrence: US)
  Receive Date: 20151104
  Receipt Date: 20151104
  Transmission Date: 20160304
  Serious: Yes (Other)
  Sender: FDA-Public Use
  Company Number: US-ACTAVIS-2015-19156

PATIENT
  Age: 60 Year
  Sex: Male

DRUGS (2)
  1. CLONAZEPAM (AELLC) [Suspect]
     Active Substance: CLONAZEPAM
     Indication: PRODUCT USED FOR UNKNOWN INDICATION
     Dosage: 0.5 MG, TID
     Route: 048
     Dates: start: 20150819, end: 20150903
  2. CLONAZEPAM (AELLC) [Suspect]
     Active Substance: CLONAZEPAM
     Dosage: UNK, UNKNOWN
     Route: 048
     Dates: start: 1985, end: 2015

REACTIONS (2)
  - Syncope [Unknown]
  - Loss of consciousness [Unknown]
